FAERS Safety Report 8620095-9 (Version None)
Quarter: 2012Q3

REPORT INFORMATION
  Report Type: 
  Country: None (occurrence: None)
  Receive Date: 20120816
  Receipt Date: 20120816
  Transmission Date: 20120928
  Serious: Yes (Disabling)
  Sender: FDA-Public Use
  Company Number: None

PATIENT
  Age: 26 Year
  Sex: Female
  Weight: 90.7194 kg

DRUGS (1)
  1. VESICARE [Suspect]
     Indication: HYPERTONIC BLADDER
     Dosage: 10 ML, DAILY, PO
     Dates: start: 20120620, end: 20120623

REACTIONS (3)
  - VISION BLURRED [None]
  - DIZZINESS [None]
  - IMPAIRED DRIVING ABILITY [None]
